FAERS Safety Report 23730816 (Version 4)
Quarter: 2024Q3

REPORT INFORMATION
  Report Type: Report from Study
  Country: CA (occurrence: CA)
  Receive Date: 20240411
  Receipt Date: 20240731
  Transmission Date: 20241016
  Serious: Yes (Death, Hospitalization, Other)
  Sender: SAMSUNG BIOEPIS
  Company Number: CA-SAMSUNG BIOEPIS-SB-2024-10315

PATIENT
  Age: 74 Year
  Sex: Male

DRUGS (3)
  1. HADLIMA [Suspect]
     Active Substance: ADALIMUMAB-BWWD
     Indication: Ankylosing spondylitis
     Route: 065
     Dates: start: 20230303
  2. METHOTREXATE [Concomitant]
     Active Substance: METHOTREXATE
     Indication: Product used for unknown indication
     Route: 065
  3. FOLIC ACID [Concomitant]
     Active Substance: FOLIC ACID
     Indication: Product used for unknown indication
     Route: 065

REACTIONS (7)
  - Death [Fatal]
  - Coma [Unknown]
  - Infection [Not Recovered/Not Resolved]
  - Kidney infection [Unknown]
  - Clostridium difficile infection [Unknown]
  - Illness [Unknown]
  - Cystitis [Unknown]

NARRATIVE: CASE EVENT DATE: 20230701
